FAERS Safety Report 24591841 (Version 1)
Quarter: 2024Q4

REPORT INFORMATION
  Report Type: Report from Study
  Country: US (occurrence: US)
  Receive Date: 20241108
  Receipt Date: 20241108
  Transmission Date: 20250115
  Serious: Yes (Other)
  Sender: ALEXION PHARMACEUTICALS
  Company Number: US-AstraZeneca-CH-00726995A

PATIENT

DRUGS (8)
  1. CAPIVASERTIB [Suspect]
     Active Substance: CAPIVASERTIB
     Indication: Breast cancer female
     Dosage: 400 MILLIGRAM, Q12H
  2. CAPIVASERTIB [Suspect]
     Active Substance: CAPIVASERTIB
     Dosage: 400 MILLIGRAM, Q12H
  3. CAPIVASERTIB [Suspect]
     Active Substance: CAPIVASERTIB
     Dosage: 400 MILLIGRAM, Q12H
  4. CAPIVASERTIB [Suspect]
     Active Substance: CAPIVASERTIB
     Dosage: 400 MILLIGRAM, Q12H
  5. PREDNISONE [Concomitant]
     Active Substance: PREDNISONE
     Dosage: 20MG TWICE DAILY FOR 5 DAYS,
  6. PREDNISONE [Concomitant]
     Active Substance: PREDNISONE
     Dosage: 20MG TWICE DAILY FOR 5 DAYS,
     Route: 065
  7. PREDNISONE [Concomitant]
     Active Substance: PREDNISONE
     Dosage: 20MG DAILY FOR 5 DAYS,
  8. PREDNISONE [Concomitant]
     Active Substance: PREDNISONE
     Dosage: 10MG DAILY FOR 5 DAYS.

REACTIONS (3)
  - Lip swelling [Unknown]
  - Hypersensitivity [Unknown]
  - Rash macular [Unknown]
